FAERS Safety Report 24560444 (Version 1)
Quarter: 2024Q4

REPORT INFORMATION
  Report Type: Spontaneous
  Country: KR (occurrence: KR)
  Receive Date: 20241029
  Receipt Date: 20241029
  Transmission Date: 20250115
  Serious: Yes (Death, Hospitalization, Other)
  Sender: BRISTOL-MYERS SQUIBB COMPANY
  Company Number: KR-BRISTOL-MYERS SQUIBB COMPANY-2024-167346

PATIENT
  Age: 73 Year
  Sex: Male
  Weight: 64 kg

DRUGS (6)
  1. ELIQUIS [Suspect]
     Active Substance: APIXABAN
     Indication: Product used for unknown indication
     Dates: start: 20201207, end: 202101
  2. CARVEDILOL [Concomitant]
     Active Substance: CARVEDILOL
     Indication: Product used for unknown indication
  3. SPIRONOLACTONE [Concomitant]
     Active Substance: SPIRONOLACTONE
     Indication: Product used for unknown indication
  4. FUROSEMIDE [Concomitant]
     Active Substance: FUROSEMIDE
     Indication: Product used for unknown indication
  5. LEVOFLOXACIN [Concomitant]
     Active Substance: LEVOFLOXACIN
     Indication: Product used for unknown indication
  6. PIPERACILLIN AND TAZOBACTAM [Concomitant]
     Active Substance: PIPERACILLIN SODIUM\TAZOBACTAM SODIUM
     Indication: Product used for unknown indication

REACTIONS (13)
  - Respiratory disorder [Not Recovered/Not Resolved]
  - Pyrexia [Unknown]
  - Fall [Not Recovered/Not Resolved]
  - Choking [Recovered/Resolved]
  - Respiratory rate decreased [Fatal]
  - Acidosis [Recovering/Resolving]
  - Cardiac arrest [Fatal]
  - Urine output decreased [Not Recovered/Not Resolved]
  - Acute kidney injury [Recovering/Resolving]
  - Vomiting [Recovered/Resolved]
  - Asphyxia [Recovered/Resolved]
  - Pneumonia [Not Recovered/Not Resolved]
  - Hypotension [Fatal]

NARRATIVE: CASE EVENT DATE: 20210106
